FAERS Safety Report 19642895 (Version 1)
Quarter: 2021Q3

REPORT INFORMATION
  Report Type: Other
  Country: US (occurrence: US)
  Receive Date: 20210730
  Receipt Date: 20210730
  Transmission Date: 20211014
  Serious: Yes (Life-Threatening)
  Sender: FDA-Public Use
  Company Number: US-B.BRAUN MEDICAL INC.-2114478

PATIENT
  Age: 23 Year
  Sex: Male

DRUGS (8)
  1. ALBUTEROL. [Concomitant]
     Active Substance: ALBUTEROL
     Route: 055
  2. MAGNESIUM SULFATE. [Concomitant]
     Active Substance: MAGNESIUM SULFATE
  3. EPINEPHRINE. [Concomitant]
     Active Substance: EPINEPHRINE
  4. RACEMIC EPINEPHRINE [Concomitant]
     Active Substance: RACEPINEPHRINE
     Route: 055
  5. HELIOX [Concomitant]
     Active Substance: OXYGEN
  6. LIDOCAINE HYDROCHLORIDE AND DEXTROSE [Suspect]
     Active Substance: DEXTROSE\LIDOCAINE HYDROCHLORIDE
     Indication: ASTHMA
  7. STEROIDS [Concomitant]
     Active Substance: UNSPECIFIED INGREDIENT
  8. KETAMINE [Concomitant]
     Active Substance: KETAMINE
     Route: 042

REACTIONS (1)
  - Drug ineffective [None]
